FAERS Safety Report 21568659 (Version 4)
Quarter: 2022Q4

REPORT INFORMATION
  Report Type: Spontaneous
  Country: RU (occurrence: RU)
  Receive Date: 20221108
  Receipt Date: 20221209
  Transmission Date: 20230113
  Serious: Yes (Death)
  Sender: FDA-Public Use
  Company Number: RU-002147023-NVSC2022RU247311

PATIENT

DRUGS (1)
  1. RUXOLITINIB [Suspect]
     Active Substance: RUXOLITINIB
     Indication: Primary myelofibrosis
     Dosage: 15 MG, BID (STARTED: A FEW YEARS AGO)
     Route: 048

REACTIONS (2)
  - Multiple organ dysfunction syndrome [Fatal]
  - COVID-19 [Fatal]
